FAERS Safety Report 12310599 (Version 1)
Quarter: 2016Q2

REPORT INFORMATION
  Report Type: Spontaneous
  Country: SE (occurrence: SE)
  Receive Date: 20160427
  Receipt Date: 20160427
  Transmission Date: 20160815
  Serious: Yes (Other)
  Sender: FDA-Public Use
  Company Number: SE-JNJFOC-20160423851

PATIENT
  Age: 71 Year
  Sex: Female

DRUGS (6)
  1. SAROTEN [Suspect]
     Active Substance: AMITRIPTYLINE
     Indication: PAIN
     Route: 048
     Dates: start: 201601
  2. KESTIN [Concomitant]
     Active Substance: EBASTINE
     Route: 065
  3. EZETROL [Concomitant]
     Active Substance: EZETIMIBE
     Route: 065
  4. CALCICHEW-D3 SPEARMINT [Concomitant]
     Active Substance: CALCIUM\CHOLECALCIFEROL
     Route: 065
  5. ISOPTO MAXIDEX [Concomitant]
     Route: 047
  6. XARELTO [Suspect]
     Active Substance: RIVAROXABAN
     Indication: PRODUCT USED FOR UNKNOWN INDICATION
     Route: 048
     Dates: start: 20160120, end: 20160415

REACTIONS (2)
  - Peripheral swelling [Not Recovered/Not Resolved]
  - Pain [Not Recovered/Not Resolved]

NARRATIVE: CASE EVENT DATE: 201601
